FAERS Safety Report 8010047-4 (Version None)
Quarter: 2011Q4

REPORT INFORMATION
  Report Type: 
  Country: None (occurrence: None)
  Receive Date: 20111221
  Receipt Date: 20111213
  Transmission Date: 20120403
  Serious: Yes (Hospitalization)
  Sender: FDA-Public Use
  Company Number: 1136829

PATIENT
  Age: 56 Year
  Sex: Female

DRUGS (7)
  1. FLUOROURACIL [Suspect]
     Indication: COLON CANCER
     Dosage: 2400 MG MILLIGRAM(S), INTRAVENOUS
     Route: 042
     Dates: start: 20110418, end: 20110912
  2. KYTRIL [Concomitant]
  3. VALIUM [Concomitant]
  4. DECADRON [Concomitant]
  5. (ANTRA /00661201/) [Concomitant]
  6. (PREFOLIC) [Concomitant]
  7. IRINOTECAN HYDROCHLORIDE [Suspect]
     Indication: COLON CANCER
     Dosage: 270 MG MILLIGRAM(S), INTRAVENOUS
     Route: 042
     Dates: start: 20110912, end: 20110912

REACTIONS (4)
  - VOMITING [None]
  - ATRIAL FIBRILLATION [None]
  - NAUSEA [None]
  - TOXICITY TO VARIOUS AGENTS [None]
